FAERS Safety Report 13238363 (Version 2)
Quarter: 2017Q1

REPORT INFORMATION
  Report Type: Spontaneous
  Country: HU (occurrence: HU)
  Receive Date: 20170216
  Receipt Date: 20170307
  Transmission Date: 20170428
  Serious: Yes (Hospitalization)
  Sender: FDA-Public Use
  Company Number: HU-TEVA-739710ACC

PATIENT
  Age: 72 Year
  Sex: Female

DRUGS (24)
  1. CHOLECALCIFEROL [Concomitant]
     Active Substance: CHOLECALCIFEROL
     Dosage: 1000 IU (INTERNATIONAL UNIT) DAILY;
  2. MILURIT [Concomitant]
     Active Substance: ALLOPURINOL
     Dosage: 200 MILLIGRAM DAILY;
  3. NEO-FERRO-FOLGAMMA [Concomitant]
     Dosage: 3 DOSAGE FORMS DAILY;
  4. NITROMINT [Concomitant]
     Dosage: 2 DOSAGE FORMS DAILY;
  5. QUAMATEL [Concomitant]
     Active Substance: FAMOTIDINE
     Route: 041
     Dates: start: 20170105, end: 20170105
  6. SALSOL A [Concomitant]
     Indication: PREMEDICATION
     Route: 041
     Dates: start: 20170105, end: 20170105
  7. PACLITAXEL- TEVA [Suspect]
     Active Substance: PACLITAXEL
     Indication: VULVAL NEOPLASM
     Dosage: 116MG ON 01/12/16 08/12/16, 76MG ON 15/12/16 22/12/2016, NO CHEMO ON 29/12/16, AND 74MG ON 05/01/17
     Route: 041
     Dates: start: 20161201
  8. ERBITUX [Suspect]
     Active Substance: CETUXIMAB
     Indication: VULVAL NEOPLASM
     Route: 041
     Dates: start: 20161201
  9. ATORIS [Concomitant]
     Active Substance: ATORVASTATIN CALCIUM
     Dosage: 20 MILLIGRAM DAILY;
  10. DIAPREL MR [Concomitant]
     Active Substance: GLICLAZIDE
     Dosage: 60MG MORNINGS AND 30MG EVENINGS
  11. VENORUTON FORTE [Concomitant]
     Active Substance: TROXERUTIN
     Dosage: 1000 MILLIGRAM DAILY;
  12. QUAMATEL [Concomitant]
     Active Substance: FAMOTIDINE
     Indication: PREMEDICATION
     Dosage: 80 MILLIGRAM DAILY;
  13. BA RES CALCIUM [Concomitant]
     Dosage: 1000 MILLIGRAM DAILY;
  14. L-THYROXIN [Concomitant]
     Active Substance: LEVOTHYROXINE SODIUM
     Dosage: 25 MICROGRAM DAILY;
  15. SUPRASTIN [Concomitant]
     Active Substance: CHLOROPYRAMINE HYDROCHLORIDE
     Indication: PREMEDICATION
     Route: 041
     Dates: start: 20170105, end: 20170105
  16. PANTOPRAZOLE [Concomitant]
     Active Substance: PANTOPRAZOLE SODIUM
  17. AMILOZID-TEVA [Concomitant]
     Dosage: 1 DOSAGE FORMS DAILY; 1DF= 5MG AMILORID + 50MG HYDROCHLOROTHIAZIDE
  18. KALDYUM [Concomitant]
     Active Substance: POTASSIUM CHLORIDE
     Dosage: 600 MILLIGRAM DAILY;
  19. MEZITAN [Concomitant]
  20. FUROSEMIDE. [Concomitant]
     Active Substance: FUROSEMIDE
     Dosage: 1 DOSAGE FORMS DAILY;
  21. ARIXTRA [Concomitant]
     Active Substance: FONDAPARINUX SODIUM
     Dosage: 2.5 MILLIGRAM DAILY;
     Route: 058
  22. CATAFLAM [Concomitant]
     Active Substance: DICLOFENAC POTASSIUM
     Dosage: 2 DOSAGE FORMS DAILY;
  23. RUDOTEL [Concomitant]
     Dosage: 20 MILLIGRAM DAILY;
  24. SOLU-MEDROL [Concomitant]
     Active Substance: METHYLPREDNISOLONE SODIUM SUCCINATE
     Indication: PREMEDICATION
     Route: 041
     Dates: start: 20170105, end: 20170105

REACTIONS (7)
  - Vomiting [Recovered/Resolved]
  - Diarrhoea [Recovered/Resolved]
  - Dehydration [Recovered/Resolved]
  - Product use issue [Not Recovered/Not Resolved]
  - Hyponatraemia [Recovered/Resolved]
  - Pyrexia [Recovered/Resolved]
  - Hypokalaemia [Recovered/Resolved]

NARRATIVE: CASE EVENT DATE: 20161201
